FAERS Safety Report 4678171-1 (Version None)
Quarter: 2005Q2

REPORT INFORMATION
  Report Type: 
  Country: None (occurrence: None)
  Receive Date: 20050601
  Receipt Date: 20050524
  Transmission Date: 20051028
  Serious: Yes (Disabling)
  Sender: FDA-Public Use
  Company Number: 200511493JP

PATIENT
  Sex: 0

DRUGS (1)
  1. TAXOTERE [Suspect]
     Route: 041
     Dates: start: 20050517, end: 20050517

REACTIONS (1)
  - DEAFNESS [None]
